FAERS Safety Report 24561073 (Version 1)
Quarter: 2024Q4

REPORT INFORMATION
  Report Type: Spontaneous
  Country: US (occurrence: None)
  Receive Date: 20241028
  Receipt Date: 20241028
  Transmission Date: 20250115
  Serious: Yes (Other)
  Sender: Public
  Company Number: None

PATIENT
  Age: 50 Year
  Sex: Female
  Weight: 94.05 kg

DRUGS (6)
  1. ZEPBOUND [Suspect]
     Active Substance: TIRZEPATIDE
     Indication: Obesity
     Dosage: OTHER QUANTITY : 1 INJECTION(S);?OTHER FREQUENCY : ONCE A WEEK;?
     Route: 058
     Dates: start: 20240507, end: 20240903
  2. SPIRIVA [Concomitant]
  3. ADVAIR HFA [Concomitant]
     Active Substance: FLUTICASONE PROPIONATE\SALMETEROL XINAFOATE
  4. ALLOPURINOL [Concomitant]
  5. Albuterol inhaler [Concomitant]
  6. VITAMIN D [Concomitant]
     Active Substance: VITAMIN D NOS

REACTIONS (2)
  - Urticaria [None]
  - Haematochezia [None]

NARRATIVE: CASE EVENT DATE: 20240827
